FAERS Safety Report 23278272 (Version 1)
Quarter: 2023Q4

REPORT INFORMATION
  Report Type: Spontaneous
  Country: PL (occurrence: PL)
  Receive Date: 20231208
  Receipt Date: 20231208
  Transmission Date: 20240109
  Serious: Yes (Death, Hospitalization, Other)
  Sender: FDA-Public Use
  Company Number: PL-SANDOZ-SDZ2023PL065361

PATIENT
  Age: 64 Year
  Sex: Female

DRUGS (13)
  1. CHONDROITIN SULFATE (BOVINE) [Concomitant]
     Active Substance: CHONDROITIN SULFATE (BOVINE)
     Indication: Supplementation therapy
     Dosage: UNK
     Route: 065
  2. DIPHENHYDRAMINE [Interacting]
     Active Substance: DIPHENHYDRAMINE
     Indication: Osteoarthritis
     Dosage: UNK (COMBINATION OF PARACETAMOL WITH DIPHENHYDRAMINE BEFORE NIGHT)
     Route: 065
  3. METOPROLOL [Interacting]
     Active Substance: METOPROLOL
     Indication: Osteoarthritis
     Dosage: 50 MG, QD
     Route: 065
  4. METOPROLOL [Interacting]
     Active Substance: METOPROLOL
     Indication: Atrial fibrillation
  5. OMEPRAZOLE [Interacting]
     Active Substance: OMEPRAZOLE
     Indication: Abdominal pain upper
     Dosage: 40 MG, QD
     Route: 065
  6. ACETAMINOPHEN [Interacting]
     Active Substance: ACETAMINOPHEN
     Dosage: 1000 MG, BID (1000 MG, 2 X 24 H IN THE DAYTIME)
     Route: 065
  7. ACETAMINOPHEN [Interacting]
     Active Substance: ACETAMINOPHEN
     Indication: Osteoarthritis
     Dosage: UNK (COMBINATION OF PARACETAMOL WITH DIPHENHYDRAMINE BEFORE NIGHT)
     Route: 065
  8. PROPAFENONE [Interacting]
     Active Substance: PROPAFENONE
     Indication: Atrial fibrillation
     Dosage: 150 MG, BID (300 MG)
     Route: 065
  9. PROPAFENONE [Interacting]
     Active Substance: PROPAFENONE
     Indication: Osteoarthritis
  10. WARFARIN [Interacting]
     Active Substance: WARFARIN
     Indication: Osteoarthritis
     Dosage: VARIABLE DOSE
     Route: 065
  11. WARFARIN [Interacting]
     Active Substance: WARFARIN
     Indication: Abdominal pain upper
  12. WARFARIN [Interacting]
     Active Substance: WARFARIN
     Indication: Anticoagulant therapy
  13. WARFARIN [Interacting]
     Active Substance: WARFARIN
     Indication: Atrial fibrillation

REACTIONS (3)
  - Subarachnoid haemorrhage [Fatal]
  - Loss of consciousness [Unknown]
  - Arthralgia [Unknown]
